FAERS Safety Report 4598334-3 (Version None)
Quarter: 2005Q1

REPORT INFORMATION
  Report Type: 
  Country: None (occurrence: None)
  Receive Date: 20050302
  Receipt Date: 20050218
  Transmission Date: 20050727
  Serious: Yes (Other)
  Sender: FDA-Public Use
  Company Number: 200416370BCC

PATIENT
  Age: 60 Year
  Sex: Female
  Weight: 83.4619 kg

DRUGS (9)
  1. ALEVE (CAPLET) [Suspect]
     Indication: TOOTH INFECTION
     Dosage: SEE IMAGE
     Dates: start: 20041001, end: 20041101
  2. ALEVE (CAPLET) [Suspect]
  3. PREMARIN [Suspect]
  4. CLINDAMYCIN HCL [Concomitant]
  5. CEPHALEXIN [Concomitant]
  6. HYZAAR [Concomitant]
  7. LIPITOR [Concomitant]
  8. SYNTHROID [Concomitant]
  9. PREMARINA [Concomitant]

REACTIONS (2)
  - MEDICATION ERROR [None]
  - VAGINAL HAEMORRHAGE [None]
